FAERS Safety Report 9234792 (Version 2)
Quarter: 2013Q2

REPORT INFORMATION
  Report Type: Report from Study
  Country: JP (occurrence: JP)
  Receive Date: 20130416
  Receipt Date: 20130507
  Transmission Date: 20140414
  Serious: Yes (Hospitalization)
  Sender: FDA-Public Use
  Company Number: JP-NAPPMUNDI-GBR-2013-0013698

PATIENT
  Age: 67 Year
  Sex: Female
  Weight: 58 kg

DRUGS (10)
  1. BTDS 5 MG [Suspect]
     Indication: ANALGESIC THERAPY
     Dosage: 5 MCG, Q1H
     Route: 062
     Dates: start: 20121010, end: 20121031
  2. MECOBALAMIN [Concomitant]
     Indication: SPONDYLOLISTHESIS
     Dosage: UNK
     Route: 048
     Dates: start: 20120726
  3. HYPEN                              /00613801/ [Concomitant]
     Indication: OSTEOARTHRITIS
     Dosage: UNK
     Route: 048
     Dates: start: 20120620
  4. CEREGASRON [Concomitant]
     Indication: PROPHYLAXIS
     Dosage: UNK
     Route: 048
     Dates: start: 20120620
  5. NOVAMIN                            /00013301/ [Concomitant]
     Indication: PROPHYLAXIS
     Dosage: 15 MG, DAILY
     Route: 048
     Dates: start: 20121010, end: 20121017
  6. LIVALO [Concomitant]
     Indication: HYPERCHOLESTEROLAEMIA
     Dosage: UNK
     Route: 048
     Dates: start: 20120626
  7. MOHRUS L [Concomitant]
     Indication: OSTEOARTHRITIS
     Dosage: UNK, BID
     Route: 061
     Dates: start: 20120620
  8. MOHRUS L [Concomitant]
     Indication: SPONDYLOLISTHESIS
  9. RINDERON                           /00008501/ [Concomitant]
     Indication: OSTEOARTHRITIS
     Dosage: 2.5 MG QOW
     Route: 042
     Dates: start: 20120626
  10. XYLOCAINE                          /00033401/ [Concomitant]
     Indication: OSTEOARTHRITIS
     Dosage: 1 ML, QOW
     Route: 042
     Dates: start: 20120626

REACTIONS (4)
  - Gastrointestinal infection [Unknown]
  - Vomiting [Recovering/Resolving]
  - Nausea [Recovering/Resolving]
  - Constipation [Recovered/Resolved]
